FAERS Safety Report 13961200 (Version 1)
Quarter: 2017Q3

REPORT INFORMATION
  Report Type: Spontaneous
  Country: GB (occurrence: GB)
  Receive Date: 20170912
  Receipt Date: 20170912
  Transmission Date: 20171128
  Serious: Yes (Hospitalization)
  Sender: FDA-Public Use
  Company Number: GB-TEVA-804215ACC

PATIENT
  Age: 76 Year
  Sex: Male

DRUGS (9)
  1. EPLERENONE. [Concomitant]
     Active Substance: EPLERENONE
  2. BUMETANIDE. [Concomitant]
     Active Substance: BUMETANIDE
  3. LANSOPRAZOLE. [Concomitant]
     Active Substance: LANSOPRAZOLE
  4. BISOPROLOL [Concomitant]
     Active Substance: BISOPROLOL
  5. DIGOXIN. [Concomitant]
     Active Substance: DIGOXIN
  6. ISOSORBIDE MONONITRATE. [Concomitant]
     Active Substance: ISOSORBIDE MONONITRATE
  7. WARFARIN [Suspect]
     Active Substance: WARFARIN
     Indication: ATRIAL FIBRILLATION
     Dosage: AS PER INTERNATIONAL NORMALIZED RATIO (INR)
     Route: 048
     Dates: end: 20170818
  8. RAMIPRIL. [Concomitant]
     Active Substance: RAMIPRIL
  9. SIMVASTATIN. [Concomitant]
     Active Substance: SIMVASTATIN

REACTIONS (4)
  - Subdural haemorrhage [Unknown]
  - Subarachnoid haemorrhage [Recovering/Resolving]
  - Headache [Unknown]
  - Photophobia [Unknown]
